FAERS Safety Report 12885911 (Version 1)
Quarter: 2016Q4

REPORT INFORMATION
  Report Type: Spontaneous
  Country: DE (occurrence: DE)
  Receive Date: 20161026
  Receipt Date: 20161026
  Transmission Date: 20170207
  Serious: Yes (Other)
  Sender: FDA-Public Use
  Company Number: DE-TEVA-704198GER

PATIENT
  Sex: Female

DRUGS (1)
  1. ALENDRONSAEURE ABZ 70 MG TABLETTEN [Suspect]
     Active Substance: ALENDRONATE SODIUM

REACTIONS (2)
  - Arrhythmia [Unknown]
  - Calcium deficiency [Unknown]

NARRATIVE: CASE EVENT DATE: 2016
